FAERS Safety Report 6715965-2 (Version None)
Quarter: 2010Q2

REPORT INFORMATION
  Report Type: 
  Country: None (occurrence: None)
  Receive Date: 20100507
  Receipt Date: 20100429
  Transmission Date: 20101027
  Serious: Yes (Hospitalization, Other)
  Sender: FDA-Public Use
  Company Number: US-JNJCH-2010010562

PATIENT
  Age: 72 Year
  Sex: Female
  Weight: 62.1 kg

DRUGS (1)
  1. NATURAL CITRUS LISTERINE [Suspect]
     Indication: DRUG USE FOR UNKNOWN INDICATION
     Dosage: TEXT:TWICE A DAY
     Route: 048

REACTIONS (3)
  - ATRIOVENTRICULAR BLOCK [None]
  - GLOSSITIS [None]
  - MYOCARDIAL INFARCTION [None]
